FAERS Safety Report 18256391 (Version 4)
Quarter: 2020Q4

REPORT INFORMATION
  Report Type: Report from Study
  Country: PT (occurrence: PT)
  Receive Date: 20200911
  Receipt Date: 20201130
  Transmission Date: 20210113
  Serious: Yes (Hospitalization)
  Sender: FDA-Public Use
  Company Number: PT-EMD SERONO-9184269

PATIENT
  Age: 30 Year
  Sex: Female
  Weight: 96 kg

DRUGS (14)
  1. OMEPRAZOLE. [Concomitant]
     Active Substance: OMEPRAZOLE
     Indication: PROPHYLAXIS
     Route: 048
     Dates: start: 2015
  2. SEDOXIL [Concomitant]
     Active Substance: MEXAZOLAM
     Indication: ANXIETY
     Dates: start: 201805
  3. SOCIAN [Concomitant]
     Active Substance: AMISULPRIDE
     Indication: ANXIETY
     Dates: start: 201805
  4. SERTRALINE [Concomitant]
     Active Substance: SERTRALINE HYDROCHLORIDE
     Dosage: MG HALF DOSAGE FORM EVERY DAY
     Route: 048
     Dates: start: 20190315
  5. BISACODYL. [Concomitant]
     Active Substance: BISACODYL
     Indication: PRODUCT USED FOR UNKNOWN INDICATION
     Route: 048
     Dates: start: 20200905, end: 20200906
  6. TOPIRAMATE. [Concomitant]
     Active Substance: TOPIRAMATE
     Indication: MULTIPLE SCLEROSIS
     Route: 048
     Dates: start: 201912
  7. GLUCOSE [Concomitant]
     Active Substance: DEXTROSE
     Indication: PRODUCT USED FOR UNKNOWN INDICATION
     Dosage: 50MG/ML SOLUTION FOR INJECTION VIAL 1000 MG IV
     Route: 042
     Dates: start: 20200905
  8. SEDOXIL [Concomitant]
     Active Substance: MEXAZOLAM
     Indication: STRESS
  9. MINIGEST                           /00082602/ [Concomitant]
     Indication: CONTRACEPTION
     Dosage: EVERY DAY
     Route: 048
  10. SOCIAN [Concomitant]
     Active Substance: AMISULPRIDE
     Indication: STRESS
  11. TOPIRAMATE. [Concomitant]
     Active Substance: TOPIRAMATE
     Indication: MIGRAINE
     Route: 048
  12. MAVENCLAD [Suspect]
     Active Substance: CLADRIBINE
     Indication: RELAPSING-REMITTING MULTIPLE SCLEROSIS
     Dosage: YEAR ONE WEEK ONE: TWO TABLETS ON DAYS 1 TO 4 AND ONE TABLET ON DAY 5.
     Route: 048
     Dates: start: 20200824, end: 20200828
  13. SERTRALINE [Concomitant]
     Active Substance: SERTRALINE HYDROCHLORIDE
     Indication: DEPRESSION
     Route: 048
     Dates: start: 2018
  14. MINIGEST                           /00082602/ [Concomitant]
     Indication: PRODUCT USED FOR UNKNOWN INDICATION
     Route: 048

REACTIONS (1)
  - Hepatitis acute [Recovered/Resolved]

NARRATIVE: CASE EVENT DATE: 20200901
